FAERS Safety Report 5441807-1 (Version None)
Quarter: 2007Q3

REPORT INFORMATION
  Report Type: 
  Country: None (occurrence: None)
  Receive Date: 20070830
  Receipt Date: 20070830
  Transmission Date: 20080115
  Serious: No
  Sender: FDA-Public Use
  Company Number: None

PATIENT
  Sex: Male

DRUGS (4)
  1. GADOPENTETATE -MAGNEVIST- [Suspect]
     Indication: ANGIOGRAM
     Dosage: IV
     Route: 042
     Dates: start: 20040630, end: 20040630
  2. GADOPENTETATE -MAGNEVIST- [Suspect]
     Indication: NUCLEAR MAGNETIC RESONANCE IMAGING
     Dosage: IV
     Route: 042
     Dates: start: 20040630, end: 20040630
  3. GADOPENTETATE -MAGNEVIST- [Suspect]
     Indication: ANGIOGRAM
     Dosage: IV
     Route: 042
     Dates: start: 20051129, end: 20051129
  4. GADOPENTETATE -MAGNEVIST- [Suspect]
     Indication: NUCLEAR MAGNETIC RESONANCE IMAGING
     Dosage: IV
     Route: 042
     Dates: start: 20051129, end: 20051129

REACTIONS (1)
  - NEPHROGENIC SYSTEMIC FIBROSIS [None]
